FAERS Safety Report 9319555 (Version 1)
Quarter: 2013Q2

REPORT INFORMATION
  Report Type: Spontaneous
  Country: US (occurrence: US)
  Receive Date: 20130530
  Receipt Date: 20130530
  Transmission Date: 20140414
  Serious: No
  Sender: FDA-Public Use
  Company Number: US-GLAXOSMITHKLINE-A1004706A

PATIENT
  Age: 50 Year
  Sex: Male

DRUGS (1)
  1. FLOLAN [Suspect]
     Indication: COR PULMONALE CHRONIC
     Dosage: 35NGKM CONTINUOUS
     Route: 042
     Dates: start: 20080604

REACTIONS (3)
  - Malaise [Unknown]
  - Drug administration error [Unknown]
  - Nasal congestion [Unknown]
